FAERS Safety Report 17087066 (Version 1)
Quarter: 2019Q4

REPORT INFORMATION
  Report Type: Spontaneous
  Country: GB (occurrence: GB)
  Receive Date: 20191128
  Receipt Date: 20191128
  Transmission Date: 20200122
  Serious: Yes (Life-Threatening, Hospitalization)
  Sender: FDA-Public Use
  Company Number: GB-TEVA-2019-GB-1142780

PATIENT
  Age: 64 Year
  Sex: Female

DRUGS (11)
  1. GABAPENTIN. [Suspect]
     Active Substance: GABAPENTIN
     Indication: SEIZURE
     Dosage: 40 ML
     Route: 048
     Dates: start: 20191002, end: 20191002
  2. BACLOFEN. [Concomitant]
     Active Substance: BACLOFEN
     Dosage: 60 ML, 5MG/5ML
     Route: 048
  3. FENCINO [Concomitant]
     Dosage: 50 MCG
     Route: 062
  4. ZOPICLONE [Concomitant]
     Active Substance: ZOPICLONE
     Dosage: 11.25 MG, AT NIGHT
     Route: 048
  5. DIPROBASE [Concomitant]
     Active Substance: CHLOROCRESOL
     Dosage: 1 DOSAGE FORM
  6. CYCLIZINE [Concomitant]
     Active Substance: CYCLIZINE
     Dosage: 150 MG
     Route: 048
  7. DERMOL [Concomitant]
     Active Substance: BENZALKONIUM CHLORIDE\CHLORHEXIDINE HYDROCHLORIDE\ISOPROPYL MYRISTATE\PARAFFIN
  8. LANSOPRAZOLE. [Concomitant]
     Active Substance: LANSOPRAZOLE
     Dosage: 30 MG
     Route: 048
  9. COCODAMOL [Concomitant]
     Active Substance: ACETAMINOPHEN\CODEINE PHOSPHATE
     Dosage: 8 DOSAGE FORMS
     Route: 048
  10. CO-AMILOFRUSE [Concomitant]
     Active Substance: AMILORIDE\FUROSEMIDE
     Dosage: 2 DOSAGE FORMS
     Route: 048
  11. CALCIUM AND COLECALCIFEROL [Concomitant]
     Dosage: 1 DOSAGE FORM
     Route: 048

REACTIONS (1)
  - Anaphylactic reaction [Recovered/Resolved]

NARRATIVE: CASE EVENT DATE: 20191002
